FAERS Safety Report 24713098 (Version 2)
Quarter: 2025Q1

REPORT INFORMATION
  Report Type: Report from Study
  Country: KR (occurrence: KR)
  Receive Date: 20241209
  Receipt Date: 20250106
  Transmission Date: 20250408
  Serious: Yes (Other)
  Sender: INCYTE
  Company Number: KR-002147023-NVSC2024KR230745

PATIENT

DRUGS (22)
  1. RUXOLITINIB [Suspect]
     Active Substance: RUXOLITINIB
     Indication: Graft versus host disease
     Route: 065
     Dates: start: 20240614
  2. RUXOLITINIB [Suspect]
     Active Substance: RUXOLITINIB
     Route: 048
     Dates: start: 20240626, end: 20240709
  3. RUXOLITINIB [Suspect]
     Active Substance: RUXOLITINIB
     Route: 048
     Dates: start: 20240710, end: 20240717
  4. CYCLOSPORINE [Concomitant]
     Active Substance: CYCLOSPORINE
     Indication: Graft versus host disease
     Dosage: 200 MG, QD
     Route: 048
     Dates: start: 20240117, end: 20240319
  5. CYCLOSPORINE [Concomitant]
     Active Substance: CYCLOSPORINE
     Dosage: 100 MG, QD
     Route: 048
     Dates: start: 20240117, end: 20240521
  6. CYCLOSPORINE [Concomitant]
     Active Substance: CYCLOSPORINE
     Dosage: 25 MG, QD
     Route: 048
     Dates: start: 20240508, end: 20240717
  7. PREDNISOLONE [Concomitant]
     Active Substance: PREDNISOLONE
     Indication: Graft versus host disease
     Dosage: 25 MG, QD
     Route: 048
     Dates: start: 20240124, end: 20240125
  8. PREDNISOLONE [Concomitant]
     Active Substance: PREDNISOLONE
     Dosage: 100 MG, QD
     Route: 048
     Dates: start: 20240126, end: 20240204
  9. PREDNISOLONE [Concomitant]
     Active Substance: PREDNISOLONE
     Dosage: 50 MG, QD
     Route: 048
     Dates: start: 20240131, end: 20240208
  10. PREDNISOLONE [Concomitant]
     Active Substance: PREDNISOLONE
     Dosage: 60 MG, QD
     Route: 048
     Dates: start: 20240214, end: 20240220
  11. PREDNISOLONE [Concomitant]
     Active Substance: PREDNISOLONE
     Dosage: 45 MG, QD
     Route: 048
     Dates: start: 20240228, end: 20240303
  12. PREDNISOLONE [Concomitant]
     Active Substance: PREDNISOLONE
     Dosage: 90 MG, QD
     Route: 048
     Dates: start: 20240306, end: 20240312
  13. PREDNISOLONE [Concomitant]
     Active Substance: PREDNISOLONE
     Dosage: 60 MG, QD
     Route: 048
     Dates: start: 20240320, end: 20240322
  14. PREDNISOLONE [Concomitant]
     Active Substance: PREDNISOLONE
     Dosage: 15 MG, QD
     Route: 048
     Dates: start: 20240403, end: 20240409
  15. PREDNISOLONE [Concomitant]
     Active Substance: PREDNISOLONE
     Dosage: 50 MG, QD
     Route: 048
     Dates: start: 20240417, end: 20240514
  16. PREDNISOLONE [Concomitant]
     Active Substance: PREDNISOLONE
     Dosage: 150 MG, QD
     Route: 048
     Dates: start: 20240529, end: 20240604
  17. PREDNISOLONE [Concomitant]
     Active Substance: PREDNISOLONE
     Dosage: 100 MG, QD
     Route: 048
     Dates: start: 20240626, end: 20240628
  18. VALCYTE [Concomitant]
     Active Substance: VALGANCICLOVIR HYDROCHLORIDE
     Indication: Prophylaxis
     Dosage: 2 DOSAGE FORM, QD (2 TAB/DAY)
     Route: 048
     Dates: start: 20240626, end: 20240709
  19. LERIZINE [Concomitant]
     Indication: Graft versus host disease
     Dosage: 1 DOSAGE FORM, QD (1 TAB/DAY)
     Route: 048
     Dates: start: 20240626, end: 20240717
  20. SULFAMETHOXAZOLE\TRIMETHOPRIM [Concomitant]
     Active Substance: SULFAMETHOXAZOLE\TRIMETHOPRIM
     Indication: Prophylaxis
     Dosage: 480 MG, QD
     Route: 048
     Dates: start: 20240626, end: 20240717
  21. URSODIOL [Concomitant]
     Active Substance: URSODIOL
     Indication: Prophylaxis
     Dosage: 1 DOSAGE FORM, QD (1 TAB/DAY)
     Route: 048
     Dates: start: 20240626, end: 20240717
  22. SUSPEN ER [Concomitant]
     Indication: Prophylaxis
     Dosage: 1 DOSAGE FORM, QD (1 TAB/DAY)
     Route: 048
     Dates: start: 20240610, end: 20240717

REACTIONS (1)
  - Cytopenia [Recovered/Resolved]

NARRATIVE: CASE EVENT DATE: 20240710
